FAERS Safety Report 8307977-2 (Version None)
Quarter: 2012Q2

REPORT INFORMATION
  Report Type: 
  Country: None (occurrence: None)
  Receive Date: 20120424
  Receipt Date: 20120419
  Transmission Date: 20120825
  Serious: Yes (Other)
  Sender: FDA-Public Use
  Company Number: US-GLAXOSMITHKLINE-A0974364A

PATIENT
  Sex: Female

DRUGS (4)
  1. NAVELBINE [Concomitant]
  2. TYKERB [Suspect]
     Indication: BREAST CANCER
     Route: 048
     Dates: start: 20120101
  3. HERCEPTIN [Concomitant]
  4. FLUOROURACIL [Concomitant]

REACTIONS (1)
  - PANCREATITIS [None]
